FAERS Safety Report 8821477 (Version 2)
Quarter: 2012Q4

REPORT INFORMATION
  Report Type: 
  Country: US (occurrence: US)
  Receive Date: 20121002
  Receipt Date: 20121213
  Transmission Date: 20130627
  Serious: Yes (Death, Other)
  Sender: FDA-Public Use
  Company Number: PHHY2012US072588

PATIENT
  Sex: Female

DRUGS (8)
  1. JAKAFI [Suspect]
     Indication: MYELOFIBROSIS
     Dosage: 25 mg, BID
     Route: 048
     Dates: start: 201207
  2. JAKAFI [Suspect]
     Indication: POLYCYTHAEMIA VERA
     Dosage: 25 mg, QD
     Route: 048
  3. JAKAFI [Suspect]
     Dosage: 10 mg, BID
     Dates: start: 20120718
  4. VANCOMYCIN [Suspect]
  5. MEROPENEM [Suspect]
  6. BACTRIM [Suspect]
  7. VORICONAZOLE [Concomitant]
  8. VALTREX [Concomitant]

REACTIONS (4)
  - Myelodysplastic syndrome transformation [Fatal]
  - Thrombocytopenia [Unknown]
  - Device related sepsis [Unknown]
  - Febrile neutropenia [Unknown]
